FAERS Safety Report 17649317 (Version 4)
Quarter: 2022Q4

REPORT INFORMATION
  Report Type: Spontaneous
  Country: US (occurrence: US)
  Receive Date: 20200409
  Receipt Date: 20221116
  Transmission Date: 20230112
  Serious: Yes (Other)
  Sender: FDA-Public Use
  Company Number: US-SA-2020SA088065

PATIENT
  Age: 77 Year
  Sex: Female

DRUGS (2)
  1. DUPIXENT [Suspect]
     Active Substance: DUPILUMAB
     Indication: Cutaneous T-cell lymphoma
     Dosage: 600 MG, 1X
     Route: 058
  2. DUPIXENT [Suspect]
     Active Substance: DUPILUMAB
     Dosage: 300 MG, QOW
     Route: 058

REACTIONS (8)
  - Cutaneous T-cell lymphoma stage IV [Recovering/Resolving]
  - Disease progression [Recovering/Resolving]
  - Off label use [Recovering/Resolving]
  - Dermatitis exfoliative generalised [Recovering/Resolving]
  - Lymphadenopathy [Recovering/Resolving]
  - Pruritus [Recovering/Resolving]
  - Drug ineffective [Recovering/Resolving]
  - Alopecia [Recovering/Resolving]
